FAERS Safety Report 10206378 (Version 3)
Quarter: 2014Q3

REPORT INFORMATION
  Report Type: Spontaneous
  Country: AU (occurrence: AU)
  Receive Date: 20140530
  Receipt Date: 20140801
  Transmission Date: 20150326
  Serious: Yes (Other)
  Sender: FDA-Public Use
  Company Number: AU-JNJFOC-20140513291

PATIENT
  Sex: Male
  Weight: 92 kg

DRUGS (7)
  1. COSUDEX [Concomitant]
     Active Substance: BICALUTAMIDE
     Route: 065
  2. DOCETAXEL [Concomitant]
     Active Substance: DOCETAXEL
     Route: 065
     Dates: start: 20120228
  3. CABAZITAXEL [Concomitant]
     Active Substance: CABAZITAXEL
     Route: 065
  4. DENOSUMAB [Concomitant]
     Active Substance: DENOSUMAB
     Route: 065
  5. ZOLADEX [Concomitant]
     Active Substance: GOSERELIN ACETATE
     Indication: PROSTATE CANCER
     Route: 065
  6. DOCETAXEL [Concomitant]
     Active Substance: DOCETAXEL
     Route: 065
     Dates: start: 20120207
  7. ZYTIGA [Suspect]
     Active Substance: ABIRATERONE ACETATE
     Indication: PRODUCT USED FOR UNKNOWN INDICATION
     Route: 048
     Dates: start: 201402

REACTIONS (5)
  - Pain [Unknown]
  - Fatigue [Unknown]
  - Rhinorrhoea [Unknown]
  - Partial seizures [Unknown]
  - Partial seizures with secondary generalisation [Unknown]
